FAERS Safety Report 7675848-0 (Version None)
Quarter: 2011Q3

REPORT INFORMATION
  Report Type: 
  Country: None (occurrence: None)
  Receive Date: 20110810
  Receipt Date: 20110808
  Transmission Date: 20111222
  Serious: Yes (Hospitalization)
  Sender: FDA-Public Use
  Company Number: FR-BRISTOL-MYERS SQUIBB COMPANY-15899206

PATIENT
  Age: 69 Year
  Sex: Female

DRUGS (7)
  1. VERAPAMIL EXTENDED-RELEASE [Suspect]
     Indication: HYPERTENSION
  2. ALDALIX [Suspect]
     Indication: HYPERTENSION
     Dosage: 1DF=1 UNITS NOS
     Route: 048
     Dates: end: 20060623
  3. COTRIATEC [Suspect]
     Indication: HYPERTENSION
     Route: 048
  4. MEDIATENSYL [Concomitant]
     Dosage: 1DF=2 CAPS MEDIATENSYL 60MG
  5. GLUCOPHAGE [Suspect]
     Indication: TYPE 2 DIABETES MELLITUS
     Route: 048
  6. IRBESARTAN [Suspect]
     Indication: HYPERTENSION
     Route: 048
  7. GLIPIZIDE [Suspect]
     Indication: TYPE 2 DIABETES MELLITUS

REACTIONS (8)
  - RENAL FAILURE ACUTE [None]
  - HYPERKALAEMIA [None]
  - METABOLIC ACIDOSIS [None]
  - GASTROINTESTINAL HAEMORRHAGE [None]
  - ANAEMIA [None]
  - GASTRIC ULCER [None]
  - ANGINA PECTORIS [None]
  - LUNG DISORDER [None]
